FAERS Safety Report 24049340 (Version 1)
Quarter: 2024Q3

REPORT INFORMATION
  Report Type: Spontaneous
  Country: US (occurrence: US)
  Receive Date: 20240704
  Receipt Date: 20240704
  Transmission Date: 20241017
  Serious: Yes (Hospitalization, Other)
  Sender: APOTEX
  Company Number: US-APOTEX-2024AP007848

PATIENT
  Age: 48 Year
  Sex: Female

DRUGS (6)
  1. GEMCITABINE [Suspect]
     Active Substance: GEMCITABINE
     Indication: Ovarian cancer metastatic
     Dosage: UNK
     Route: 065
  2. GEMCITABINE [Suspect]
     Active Substance: GEMCITABINE
     Indication: Fatigue
  3. GEMCITABINE [Suspect]
     Active Substance: GEMCITABINE
     Indication: Asthenia
  4. CARBOPLATIN [Concomitant]
     Active Substance: CARBOPLATIN
     Indication: Ovarian cancer metastatic
     Dosage: UNK
     Route: 065
  5. CARBOPLATIN [Concomitant]
     Active Substance: CARBOPLATIN
     Indication: Fatigue
  6. CARBOPLATIN [Concomitant]
     Active Substance: CARBOPLATIN
     Indication: Asthenia

REACTIONS (3)
  - Pulmonary alveolar haemorrhage [Recovering/Resolving]
  - COVID-19 [Recovering/Resolving]
  - Acute respiratory failure [Recovering/Resolving]
